FAERS Safety Report 12012216 (Version 1)
Quarter: 2016Q1

REPORT INFORMATION
  Report Type: Spontaneous
  Country: FR (occurrence: FR)
  Receive Date: 20160205
  Receipt Date: 20160205
  Transmission Date: 20160526
  Serious: Yes (Hospitalization, Other)
  Sender: FDA-Public Use
  Company Number: FR-ELI_LILLY_AND_COMPANY-FR201601009278

PATIENT
  Sex: Female

DRUGS (10)
  1. XEROQUEL [Suspect]
     Active Substance: QUETIAPINE FUMARATE
     Indication: BIPOLAR DISORDER
     Dosage: UNK, UNKNOWN
     Route: 065
     Dates: end: 20150514
  2. CELESTENE CHRONODOSE [Suspect]
     Active Substance: BETAMETHASONE
     Dosage: 12 MG, UNKNOWN
     Route: 065
     Dates: start: 20150916
  3. CEFOTAXIME [Suspect]
     Active Substance: CEFOTAXIME SODIUM
     Indication: PRODUCT USED FOR UNKNOWN INDICATION
     Dosage: UNK, UNKNOWN
     Route: 065
     Dates: end: 20150829
  4. ZYPREXA [Suspect]
     Active Substance: OLANZAPINE
     Indication: BIPOLAR DISORDER
     Dosage: 10 MG, QD
     Route: 065
     Dates: start: 20150617, end: 20150916
  5. CELESTENE CHRONODOSE [Suspect]
     Active Substance: BETAMETHASONE
     Indication: BIPOLAR DISORDER
     Dosage: 12 MG, UNKNOWN
     Route: 065
     Dates: start: 20150824
  6. TERALITHE [Suspect]
     Active Substance: LITHIUM CARBONATE
     Indication: BIPOLAR DISORDER
     Dosage: UNK, UNKNOWN
     Route: 065
     Dates: end: 20150514
  7. CELESTENE CHRONODOSE [Suspect]
     Active Substance: BETAMETHASONE
     Dosage: 12 MG, UNKNOWN
     Route: 065
     Dates: start: 20150825
  8. VALDOXAN [Suspect]
     Active Substance: AGOMELATINE
     Indication: BIPOLAR DISORDER
     Dosage: UNK, UNKNOWN
     Route: 065
     Dates: end: 20150514
  9. METRONIDAZOLE. [Suspect]
     Active Substance: METRONIDAZOLE
     Indication: PRODUCT USED FOR UNKNOWN INDICATION
     Dosage: UNK, UNKNOWN
     Route: 065
     Dates: end: 20150829
  10. AMOXICILLINE                       /00249602/ [Suspect]
     Active Substance: AMOXICILLIN
     Indication: PRODUCT USED FOR UNKNOWN INDICATION
     Dosage: UNK, UNKNOWN
     Route: 065
     Dates: start: 20150829, end: 20150904

REACTIONS (2)
  - Exposure during pregnancy [Unknown]
  - Premature rupture of membranes [Unknown]

NARRATIVE: CASE EVENT DATE: 20150617
